FAERS Safety Report 5847159-7 (Version None)
Quarter: 2008Q3

REPORT INFORMATION
  Report Type: 
  Country: None (occurrence: None)
  Receive Date: 20080815
  Receipt Date: 20080807
  Transmission Date: 20090109
  Serious: Yes (Hospitalization)
  Sender: FDA-Public Use
  Company Number: PHHY2008US17348

PATIENT
  Sex: Male
  Weight: 69.841 kg

DRUGS (2)
  1. EXJADE [Suspect]
     Indication: MICROCYTIC ANAEMIA
     Dosage: 1500 MG/DAY
     Route: 048
     Dates: start: 20080707, end: 20080804
  2. EXJADE [Suspect]
     Indication: HAEMOCHROMATOSIS

REACTIONS (4)
  - MEASLES [None]
  - PYREXIA [None]
  - RASH MACULO-PAPULAR [None]
  - URINARY TRACT INFECTION [None]
